FAERS Safety Report 8179231-3 (Version None)
Quarter: 2012Q1

REPORT INFORMATION
  Report Type: 
  Country: None (occurrence: None)
  Receive Date: 20120229
  Receipt Date: 20120229
  Transmission Date: 20120608
  Serious: No
  Sender: FDA-Public Use
  Company Number: None

PATIENT
  Age: 43 Year
  Sex: Male

DRUGS (2)
  1. MULTIPLE CAM PRODUCTS [Suspect]
     Indication: LIVER INJURY
     Dates: start: 20100430, end: 20100529
  2. LEVAQUIN [Suspect]
     Indication: LIVER INJURY
     Dates: start: 20100501, end: 20100529

REACTIONS (2)
  - CHOLELITHIASIS [None]
  - CHOLESTASIS [None]
